FAERS Safety Report 6645210-8 (Version None)
Quarter: 2010Q1

REPORT INFORMATION
  Report Type: 
  Country: None (occurrence: None)
  Receive Date: 20100322
  Receipt Date: 20091214
  Transmission Date: 20100710
  Serious: Yes (Death)
  Sender: FDA-Public Use
  Company Number: PHEH2009US18944

PATIENT
  Age: 85 Year
  Sex: Female

DRUGS (4)
  1. GLEEVEC [Suspect]
     Indication: MYELOID LEUKAEMIA
     Dosage: 200 MG, QD
     Route: 048
     Dates: start: 20090117, end: 20090923
  2. LYRICA [Concomitant]
     Dosage: UNK, UNK
     Route: 065
  3. BENICAR [Concomitant]
     Dosage: UNK, UNK
     Route: 065
  4. PLAVIX [Concomitant]
     Dosage: UNK, UNK
     Route: 065

REACTIONS (1)
  - DEATH [None]
